FAERS Safety Report 7747009-8 (Version None)
Quarter: 2011Q3

REPORT INFORMATION
  Report Type: 
  Country: None (occurrence: None)
  Receive Date: 20110913
  Receipt Date: 20110907
  Transmission Date: 20111222
  Serious: Yes (Death)
  Sender: FDA-Public Use
  Company Number: PHHY2011GT79658

PATIENT
  Age: 79 Year
  Sex: Female

DRUGS (4)
  1. INSULIN [Concomitant]
     Dosage: UNK
  2. CINNARIZINE [Concomitant]
     Dosage: UNK
  3. DICLOFENAC [Concomitant]
     Dosage: UNK
  4. DIOVAN [Suspect]
     Indication: HYPERTENSION
     Dosage: 80 MG, PER DAY
     Route: 048

REACTIONS (4)
  - DEATH [None]
  - LIVER DISORDER [None]
  - COMPUTERISED TOMOGRAM ABNORMAL [None]
  - ULTRASOUND SCAN ABNORMAL [None]
